FAERS Safety Report 17604767 (Version 1)
Quarter: 2020Q1

REPORT INFORMATION
  Report Type: Spontaneous
  Country: US (occurrence: US)
  Receive Date: 20200331
  Receipt Date: 20200331
  Transmission Date: 20200409
  Serious: No
  Sender: FDA-Public Use
  Company Number: US-JNJFOC-20200335063

PATIENT
  Age: 76 Year
  Sex: Male

DRUGS (1)
  1. ZYRTEC [Suspect]
     Active Substance: CETIRIZINE HYDROCHLORIDE
     Indication: PRODUCT USED FOR UNKNOWN INDICATION
     Dosage: FOUR 10MG TABLETS IN 16 HOURS.
     Route: 048
     Dates: start: 20200321

REACTIONS (2)
  - Accidental overdose [Unknown]
  - Wrong product administered [Unknown]

NARRATIVE: CASE EVENT DATE: 20200321
